FAERS Safety Report 21158710 (Version 4)
Quarter: 2022Q4

REPORT INFORMATION
  Report Type: Report from Study
  Country: CN (occurrence: None)
  Receive Date: 20220802
  Receipt Date: 20221122
  Transmission Date: 20230112
  Serious: Yes (Hospitalization)
  Sender: FDA-Public Use
  Company Number: CN-ROCHE-3148963

PATIENT
  Age: 67 Year
  Sex: Male
  Weight: 62.7 kg

DRUGS (14)
  1. ATEZOLIZUMAB [Suspect]
     Active Substance: ATEZOLIZUMAB
     Indication: Hepatocellular carcinoma
     Dosage: START DATE OF MOST RECENT DOSE OF STUDY DRUG PRIOR TO SAE 09/JUN/2022?DOSE LAST STUDY DRUG ADMIN PRI
     Route: 041
     Dates: start: 20211117
  2. BEVACIZUMAB [Suspect]
     Active Substance: BEVACIZUMAB
     Indication: Hepatocellular carcinoma
     Dosage: START DATE OF MOST RECENT DOSE OF STUDY DRUG PRIOR TO SAE 09-JUN-2022?DOSE LAST STUDY DRUG ADMIN PRI
     Route: 042
     Dates: start: 20211117
  3. NITROGLYCERIN [Concomitant]
     Active Substance: NITROGLYCERIN
     Indication: Coronary artery disease
     Dates: start: 20211027
  4. BICYCLOL [Concomitant]
     Active Substance: BICYCLOL
     Indication: Hepatic function abnormal
     Dates: start: 20220331, end: 20220628
  5. BENAZEPRIL HYDROCHLORIDE [Concomitant]
     Active Substance: BENAZEPRIL HYDROCHLORIDE
     Indication: Hypertension
     Dates: start: 20220422
  6. CEFUROXIME SODIUM [Concomitant]
     Active Substance: CEFUROXIME SODIUM
     Indication: Pneumonia
     Dates: start: 20220627, end: 20220707
  7. HERBALS\DIAMMONIUM GLYCYRRHIZINATE [Concomitant]
     Active Substance: HERBALS\DIAMMONIUM GLYCYRRHIZINATE
     Indication: Hepatitis viral
     Dates: start: 20220630, end: 20220707
  8. VITAMIN C [Concomitant]
     Active Substance: ASCORBIC ACID
     Dates: start: 20220713, end: 20220721
  9. VITAMIN B6 [Concomitant]
     Active Substance: PYRIDOXINE HYDROCHLORIDE
     Dates: start: 20220713, end: 20220721
  10. MULBERRY [Concomitant]
     Active Substance: BROUSSONETIA PAPYRIFERA POLLEN
     Dates: start: 20220713, end: 20220721
  11. IBUPROFEN [Concomitant]
     Active Substance: IBUPROFEN
     Indication: Pyrexia
     Dates: start: 20220713, end: 20220720
  12. FAMOTIDINE [Concomitant]
     Active Substance: FAMOTIDINE
     Dates: start: 20220627, end: 20220707
  13. TIOPRONIN [Concomitant]
     Active Substance: TIOPRONIN
     Dates: start: 20220630, end: 20220707
  14. NAPROXEN [Concomitant]
     Active Substance: NAPROXEN
     Indication: Abdominal pain upper
     Dates: start: 20220505

REACTIONS (2)
  - Pneumonia [Recovered/Resolved]
  - Pneumonia [Recovered/Resolved]

NARRATIVE: CASE EVENT DATE: 20220627
